FAERS Safety Report 14804337 (Version 1)
Quarter: 2018Q2

REPORT INFORMATION
  Report Type: Report from Study
  Country: US (occurrence: US)
  Receive Date: 20180425
  Receipt Date: 20180425
  Transmission Date: 20180711
  Serious: Yes (Hospitalization)
  Sender: FDA-Public Use
  Company Number: PHHO2017US012202

PATIENT
  Age: 8 Year
  Sex: Female
  Weight: 23.5 kg

DRUGS (8)
  1. KYMRIAH [Suspect]
     Active Substance: TISAGENLECLEUCEL
     Dosage: 3.75E+06 CART19 CELLS/KG, 7.91E+07 CART19 CELLS AND 2.62E+08 TOTAL CELLS (30%)
     Route: 042
     Dates: start: 20170816, end: 20170816
  2. FLUDARABINE [Suspect]
     Active Substance: FLUDARABINE PHOSPHATE
     Indication: CHEMOTHERAPY
     Dosage: 30 MG/M2, 4 DAYS
     Route: 065
     Dates: start: 20170807, end: 20170810
  3. CYCLOPHOSPHAMIDE. [Suspect]
     Active Substance: CYCLOPHOSPHAMIDE
     Indication: CHEMOTHERAPY
     Dosage: 500 MG/M2, X 2 DAYS
     Route: 065
     Dates: start: 20170807, end: 20170808
  4. VORICONAZOLE. [Concomitant]
     Active Substance: VORICONAZOLE
     Indication: PRODUCT USED FOR UNKNOWN INDICATION
     Dosage: 200 MG, BID
     Route: 048
     Dates: start: 20170803
  5. LEVOFLOXACIN. [Concomitant]
     Active Substance: LEVOFLOXACIN
     Indication: PRODUCT USED FOR UNKNOWN INDICATION
     Dosage: 200 MG, QD
     Route: 048
     Dates: start: 20170803
  6. ALLOPURINOL. [Concomitant]
     Active Substance: ALLOPURINOL
     Indication: PRODUCT USED FOR UNKNOWN INDICATION
     Dosage: 120 MG, BID
     Route: 048
     Dates: start: 20170808
  7. KYMRIAH [Suspect]
     Active Substance: TISAGENLECLEUCEL
     Indication: ACUTE LYMPHOCYTIC LEUKAEMIA
     Dosage: 1.25E+06 CART19 CELLS/KG, 2.64E+07 CART19 CELLS AND 8.76E+07 TOTAL CELLS (10%)
     Route: 042
     Dates: start: 20170815, end: 20170815
  8. PENTAMIDINE [Concomitant]
     Active Substance: PENTAMIDINE
     Indication: PRODUCT USED FOR UNKNOWN INDICATION
     Dosage: 90 MG, Q28 DAYS
     Route: 042

REACTIONS (4)
  - Febrile neutropenia [Recovered/Resolved]
  - Cytokine release syndrome [Recovered/Resolved]
  - Cytokine release syndrome [Recovered/Resolved]
  - Febrile neutropenia [Recovered/Resolved]

NARRATIVE: CASE EVENT DATE: 20170817
